FAERS Safety Report 4640576-2 (Version None)
Quarter: 2005Q2

REPORT INFORMATION
  Report Type: 
  Country: None (occurrence: None)
  Receive Date: 20050420
  Receipt Date: 20050413
  Transmission Date: 20051028
  Serious: Yes (Other)
  Sender: FDA-Public Use
  Company Number: US-BRISTOL-MYERS SQUIBB COMPANY-12932505

PATIENT
  Age: 57 Year
  Sex: Female
  Weight: 58 kg

DRUGS (2)
  1. CETUXIMAB [Suspect]
     Indication: PANCREATIC CARCINOMA
     Dosage: 1ST CETUXIMAB COURSE 28-DEC-2004. CETUXIMAB 250 MG/M2 WEEKLY EVERY 28 DAY CYCLE. DELAYED 7 DAYS.
     Dates: start: 20050405, end: 20050405
  2. GEMCITABINE HCL [Suspect]
     Indication: PANCREATIC CARCINOMA
     Dosage: 1ST COURSE ON 28-DEC-2004. GEMCITABINE 1000 MG/M2 DAYS 1,8,15 EVERY 28 DAY CYCLE. DELAYED 7 DAYS.
     Dates: start: 20050405, end: 20050405

REACTIONS (4)
  - DIARRHOEA [None]
  - HYPOCALCAEMIA [None]
  - HYPOKALAEMIA [None]
  - HYPOMAGNESAEMIA [None]
